FAERS Safety Report 4946156-3 (Version None)
Quarter: 2006Q1

REPORT INFORMATION
  Report Type: 
  Country: None (occurrence: None)
  Receive Date: 20060118
  Receipt Date: 20050929
  Transmission Date: 20060701
  Serious: Yes (Other)
  Sender: FDA-Public Use
  Company Number: BDI-007576

PATIENT
  Sex: Female

DRUGS (1)
  1. PROHANCE [Suspect]
     Indication: NUCLEAR MAGNETIC RESONANCE IMAGING
     Dosage: 15 ML , ONCE; IV
     Route: 042
     Dates: start: 20050922, end: 20050922

REACTIONS (4)
  - ANXIETY [None]
  - FEELING HOT [None]
  - HYPOTENSION [None]
  - NAUSEA [None]
